FAERS Safety Report 5491432-1 (Version None)
Quarter: 2007Q4

REPORT INFORMATION
  Report Type: 
  Country: None (occurrence: None)
  Receive Date: 20071018
  Receipt Date: 20071009
  Transmission Date: 20080405
  Serious: Yes (Life-Threatening)
  Sender: FDA-Public Use
  Company Number: 2007AL004290

PATIENT
  Age: 65 Year

DRUGS (4)
  1. DICLOFENAC SODIUM [Suspect]
     Indication: PAIN
     Dosage: PO
     Route: 048
     Dates: start: 20070701, end: 20070901
  2. METAMIZOLE [Concomitant]
  3. ANTIBIOTICS [Concomitant]
  4. NEUPOGEN [Concomitant]

REACTIONS (3)
  - AGRANULOCYTOSIS [None]
  - CELLULITIS [None]
  - SEPSIS [None]
